FAERS Safety Report 16171230 (Version 3)
Quarter: 2019Q4

REPORT INFORMATION
  Report Type: Spontaneous
  Country: US (occurrence: US)
  Receive Date: 20190408
  Receipt Date: 20191204
  Transmission Date: 20200122
  Serious: No
  Sender: FDA-Public Use
  Company Number: US-SA-2019SA091782

PATIENT
  Age: 36 Year
  Sex: Female

DRUGS (3)
  1. DUPIXENT [Suspect]
     Active Substance: DUPILUMAB
     Dosage: 300 MG, QOW
     Route: 058
     Dates: start: 20191031
  2. DUPIXENT [Suspect]
     Active Substance: DUPILUMAB
     Indication: DERMATITIS ATOPIC
     Dosage: UNK UNK, 1X
     Route: 058
     Dates: start: 2019, end: 2019
  3. DUPIXENT [Suspect]
     Active Substance: DUPILUMAB
     Dosage: 300 MG, QOW
     Route: 058
     Dates: start: 20190308, end: 2019

REACTIONS (6)
  - Condition aggravated [Unknown]
  - Eye irritation [Unknown]
  - Injection site pain [Unknown]
  - Swelling of eyelid [Unknown]
  - Eyelid irritation [Unknown]
  - Skin irritation [Unknown]
